FAERS Safety Report 5365585-X (Version None)
Quarter: 2007Q2

REPORT INFORMATION
  Report Type: 
  Country: None (occurrence: None)
  Receive Date: 20070621
  Receipt Date: 20070608
  Transmission Date: 20071010
  Serious: Yes (Hospitalization)
  Sender: FDA-Public Use
  Company Number: JP-ROCHE-473931

PATIENT
  Age: 65 Year
  Sex: Female
  Weight: 42 kg

DRUGS (12)
  1. PEGASYS [Suspect]
     Route: 058
     Dates: start: 20061012, end: 20061019
  2. URSO 250 [Concomitant]
     Route: 048
     Dates: end: 20070213
  3. GLYCYRON [Concomitant]
     Route: 048
     Dates: end: 20070213
  4. THEO-DUR [Concomitant]
     Route: 048
     Dates: end: 20070105
  5. DOGMATYL [Concomitant]
     Route: 048
     Dates: end: 20070213
  6. NORVASC [Concomitant]
     Dosage: REPORTED AS AMLODIPINE BESILATE (NOVARSC).
     Route: 048
  7. MEDICON [Concomitant]
     Dosage: REPORTED AS DEXTROMETHORPHAN HYDROBROMIDE (MEDICON).
     Route: 048
     Dates: start: 20061011, end: 20070105
  8. MUCOSOLVAN [Concomitant]
     Dosage: REPORTED AS AMBROXOL HYDROCHLORIDE (MUCOSOLVAN).
     Route: 048
     Dates: start: 20061011, end: 20070105
  9. PL [Concomitant]
     Route: 048
     Dates: start: 20061011, end: 20061023
  10. VOLTAREN [Concomitant]
     Dosage: REPORTED AS DICLOFENEC SODIUM (VOLTAERN).
     Route: 048
     Dates: start: 20061012, end: 20061020
  11. MUCOSTA [Concomitant]
     Route: 048
     Dates: start: 20061015, end: 20061105
  12. EVAMYL [Concomitant]
     Route: 048
     Dates: start: 20061018, end: 20061104

REACTIONS (1)
  - BRONCHIECTASIS [None]
